FAERS Safety Report 7036735-4 (Version None)
Quarter: 2010Q4

REPORT INFORMATION
  Report Type: 
  Country: None (occurrence: None)
  Receive Date: 20101011
  Receipt Date: 20100915
  Transmission Date: 20110411
  Serious: No
  Sender: FDA-Public Use
  Company Number: 2009BI007548

PATIENT
  Sex: Male

DRUGS (1)
  1. TYSABRI [Suspect]
     Indication: MULTIPLE SCLEROSIS
     Route: 042
     Dates: start: 20081009

REACTIONS (13)
  - ABASIA [None]
  - AMNESIA [None]
  - ANXIETY [None]
  - BONE PAIN [None]
  - DRUG INEFFECTIVE [None]
  - IMPAIRED DRIVING ABILITY [None]
  - MANIA [None]
  - MUSCLE SPASTICITY [None]
  - PAIN [None]
  - PERONEAL NERVE PALSY [None]
  - POOR QUALITY SLEEP [None]
  - QUALITY OF LIFE DECREASED [None]
  - SUICIDAL IDEATION [None]
